FAERS Safety Report 19312768 (Version 2)
Quarter: 2021Q2

REPORT INFORMATION
  Report Type: Report from Study
  Country: None (occurrence: ES)
  Receive Date: 20210527
  Receipt Date: 20210602
  Transmission Date: 20210717
  Serious: Yes (Death, Other)
  Sender: FDA-Public Use
  Company Number: ES-ABBVIE-21K-144-3916226-00

PATIENT
  Age: 70 Year
  Sex: Female

DRUGS (2)
  1. DUODOPA [Suspect]
     Active Substance: CARBIDOPA\LEVODOPA
  2. DUODOPA [Suspect]
     Active Substance: CARBIDOPA\LEVODOPA
     Indication: PARKINSON^S DISEASE
     Route: 050
     Dates: start: 20190522

REACTIONS (4)
  - Chest pain [Fatal]
  - Pulmonary oedema [Fatal]
  - Dyspnoea [Fatal]
  - Secretion discharge [Fatal]

NARRATIVE: CASE EVENT DATE: 20210521
